FAERS Safety Report 10014618 (Version 3)
Quarter: 2014Q2

REPORT INFORMATION
  Report Type: Report from Study
  Country: DE (occurrence: DE)
  Receive Date: 20140317
  Receipt Date: 20140523
  Transmission Date: 20141212
  Serious: Yes (Hospitalization)
  Sender: FDA-Public Use
  Company Number: DE-UCBSA-114516

PATIENT
  Sex: Male

DRUGS (13)
  1. CIMZIA [Suspect]
     Indication: RHEUMATOID ARTHRITIS
     Route: 058
     Dates: start: 20120803, end: 201301
  2. METAMIZOL [Concomitant]
     Indication: RHEUMATOID ARTHRITIS
     Dates: start: 20100330
  3. PREDNISOLON [Concomitant]
     Indication: RHEUMATOID ARTHRITIS
     Dates: start: 20100330, end: 201010
  4. PREDNISOLON [Concomitant]
     Indication: RHEUMATOID ARTHRITIS
     Dosage: 1 AT NIGHT
  5. SULFASALAZIN [Concomitant]
     Indication: RHEUMATOID ARTHRITIS
     Dates: start: 20100330
  6. LODOTRA [Concomitant]
     Indication: RHEUMATOID ARTHRITIS
     Dosage: 15-10 MG QPM
     Dates: start: 20120206, end: 201209
  7. LODOTRA [Concomitant]
     Indication: RHEUMATOID ARTHRITIS
     Dosage: 5 MG QPM
     Dates: start: 201209
  8. METEX [Concomitant]
     Indication: RHEUMATOID ARTHRITIS
     Dosage: A SUFFICIENT QUANTITY
     Dates: start: 20120213, end: 20120220
  9. METEX [Concomitant]
     Indication: RHEUMATOID ARTHRITIS
     Dosage: A SUFFICIENT QUANTITY
     Dates: start: 20120220, end: 20120515
  10. METEX [Concomitant]
     Indication: RHEUMATOID ARTHRITIS
     Dosage: A SUFFICIENT QUANTITY
     Dates: start: 20120515, end: 20120723
  11. METEX [Concomitant]
     Indication: RHEUMATOID ARTHRITIS
     Dosage: A SUFFICIENT QUANTITY
     Dates: start: 20120723
  12. METEX [Concomitant]
     Indication: RHEUMATOID ARTHRITIS
     Dosage: SYRINGE ONCE PER WEEK
  13. FOLIC ACID [Concomitant]
     Dates: start: 20120213

REACTIONS (1)
  - Neck mass [Recovered/Resolved]
